FAERS Safety Report 8569043 (Version 3)
Quarter: 2013Q2

REPORT INFORMATION
  Report Type: Report from Study
  Country: AR (occurrence: AR)
  Receive Date: 20120518
  Receipt Date: 20130417
  Transmission Date: 20140414
  Serious: Yes (Other)
  Sender: FDA-Public Use
  Company Number: PHHY2012AR041347

PATIENT
  Age: 84 Year
  Sex: Female

DRUGS (2)
  1. ONBREZ [Suspect]
     Indication: ASTHMA
     Dosage: 150 UG, BID
     Dates: start: 2011
  2. ONBREZ [Suspect]
     Indication: OFF LABEL USE

REACTIONS (3)
  - Asthmatic crisis [Recovering/Resolving]
  - Cough [Recovering/Resolving]
  - Inappropriate schedule of drug administration [Unknown]
